FAERS Safety Report 13139425 (Version 3)
Quarter: 2019Q4

REPORT INFORMATION
  Report Type: Spontaneous
  Country: US (occurrence: US)
  Receive Date: 20170123
  Receipt Date: 20191025
  Transmission Date: 20200122
  Serious: Yes (Hospitalization, Other)
  Sender: FDA-Public Use
  Company Number: US-PFIZER INC-2017028615

PATIENT
  Age: 57 Year
  Sex: Male

DRUGS (1)
  1. VIAGRA [Suspect]
     Active Substance: SILDENAFIL CITRATE
     Indication: ERECTILE DYSFUNCTION
     Dosage: UNK(1 TABLET AS NEEDED; FREQUENCY VARIED ONCE OR TWICE A WEEK SOMETIMES ONCE OR TWICE A MONTH)
     Route: 048
     Dates: start: 20010711, end: 200207

REACTIONS (3)
  - Malignant melanoma stage I [Unknown]
  - Emotional distress [Unknown]
  - Anxiety [Unknown]

NARRATIVE: CASE EVENT DATE: 20040519
